FAERS Safety Report 4859707-4 (Version None)
Quarter: 2005Q4

REPORT INFORMATION
  Report Type: 
  Country: None (occurrence: None)
  Receive Date: 20051219
  Receipt Date: 20051209
  Transmission Date: 20060501
  Serious: Yes (Other)
  Sender: FDA-Public Use
  Company Number: CA-BRISTOL-MYERS SQUIBB COMPANY-13217229

PATIENT
  Age: 81 Year
  Sex: Female

DRUGS (8)
  1. TEQUIN [Suspect]
     Route: 048
  2. ATROVENT [Concomitant]
     Route: 055
  3. COUMADIN [Concomitant]
     Route: 048
  4. GLYBURIDE [Concomitant]
     Route: 048
  5. METFORMIN HCL [Concomitant]
     Route: 048
  6. PULMICORT [Concomitant]
     Route: 055
  7. RISPERDAL [Concomitant]
     Route: 048
  8. SALBUTAMOL [Concomitant]
     Route: 055

REACTIONS (1)
  - HYPOGLYCAEMIA [None]
